FAERS Safety Report 12777990 (Version 1)
Quarter: 2016Q3

REPORT INFORMATION
  Report Type: Spontaneous
  Country: US (occurrence: US)
  Receive Date: 20160924
  Receipt Date: 20160924
  Transmission Date: 20161109
  Serious: No
  Sender: FDA-Public Use
  Company Number: US-JAZZ-2016-US-010583

PATIENT
  Sex: Female

DRUGS (39)
  1. SKELAXIN [Concomitant]
     Active Substance: METAXALONE
  2. SEROQUEL [Concomitant]
     Active Substance: QUETIAPINE FUMARATE
  3. LUNESTA [Concomitant]
     Active Substance: ESZOPICLONE
  4. TOPAMAX [Concomitant]
     Active Substance: TOPIRAMATE
  5. BUSPIRONE HCL [Concomitant]
     Active Substance: BUSPIRONE HYDROCHLORIDE
  6. XYREM [Suspect]
     Active Substance: SODIUM OXYBATE
     Indication: CHRONIC FATIGUE SYNDROME
     Dosage: 4.5 G, BID
     Route: 048
     Dates: start: 201005, end: 201109
  7. XYREM [Suspect]
     Active Substance: SODIUM OXYBATE
     Dosage: 6 G, FIRST DOSE
     Route: 048
     Dates: start: 201109, end: 201201
  8. CHERATUSSIN AC [Concomitant]
     Active Substance: CODEINE PHOSPHATE\GUAIFENESIN
  9. CALCIUM CARBONATE. [Concomitant]
     Active Substance: CALCIUM CARBONATE
  10. VITAMIN D [Concomitant]
     Active Substance: CHOLECALCIFEROL
  11. ZYRTEC [Concomitant]
     Active Substance: CETIRIZINE HYDROCHLORIDE
  12. DILAUDID [Concomitant]
     Active Substance: HYDROMORPHONE HYDROCHLORIDE
  13. COENZYME Q10 [Concomitant]
     Active Substance: UBIDECARENONE
  14. IBUPROFEN. [Concomitant]
     Active Substance: IBUPROFEN
  15. DOXEPIN [Concomitant]
     Active Substance: DOXEPIN
  16. BOTOX [Concomitant]
     Active Substance: ONABOTULINUMTOXINA
  17. ZOLPIDEM [Concomitant]
     Active Substance: ZOLPIDEM\ZOLPIDEM TARTRATE
  18. ALPHA LIPOIC ACID [Concomitant]
     Active Substance: .ALPHA.-LIPOIC ACID
  19. VICODIN [Concomitant]
     Active Substance: ACETAMINOPHEN\HYDROCODONE BITARTRATE
  20. ROBAXIN [Concomitant]
     Active Substance: METHOCARBAMOL
  21. SENNA [Concomitant]
     Active Substance: SENNA LEAF\SENNOSIDES\SENNOSIDES A AND B
  22. TYLENOL [Concomitant]
     Active Substance: ACETAMINOPHEN
  23. N-ACETYL-L-CYSTEINE [Concomitant]
     Active Substance: ACETYLCYSTEINE
  24. IMITREX [Concomitant]
     Active Substance: SUMATRIPTAN SUCCINATE
  25. NALTREXONE HCL [Concomitant]
     Active Substance: NALTREXONE HYDROCHLORIDE
  26. SONATA [Concomitant]
     Active Substance: ZALEPLON
  27. GABAPENTIN. [Concomitant]
     Active Substance: GABAPENTIN
  28. XYREM [Suspect]
     Active Substance: SODIUM OXYBATE
     Dosage: 3 G, SECOND DOSE
     Route: 048
     Dates: start: 201109, end: 201201
  29. ATIVAN [Concomitant]
     Active Substance: LORAZEPAM
  30. FISH OIL [Concomitant]
     Active Substance: FISH OIL
  31. PROGESTERONE. [Concomitant]
     Active Substance: PROGESTERONE
  32. CYMBALTA [Concomitant]
     Active Substance: DULOXETINE HYDROCHLORIDE
  33. TRAMADOL HCL [Concomitant]
     Active Substance: TRAMADOL HYDROCHLORIDE
  34. ESTRADIOL. [Concomitant]
     Active Substance: ESTRADIOL
  35. PERCOCET [Concomitant]
     Active Substance: ACETAMINOPHEN\OXYCODONE HYDROCHLORIDE
  36. XYREM [Suspect]
     Active Substance: SODIUM OXYBATE
     Dosage: 4.5 G, BID
     Route: 048
     Dates: start: 201201
  37. ULTRAM [Concomitant]
     Active Substance: TRAMADOL HYDROCHLORIDE
  38. ROZEREM [Concomitant]
     Active Substance: RAMELTEON
  39. CLONAZEPAM. [Concomitant]
     Active Substance: CLONAZEPAM

REACTIONS (1)
  - Hypersensitivity [Unknown]
